FAERS Safety Report 9519636 (Version 1)
Quarter: 2013Q3

REPORT INFORMATION
  Report Type: Spontaneous
  Country: GB (occurrence: GB)
  Receive Date: 20130912
  Receipt Date: 20130912
  Transmission Date: 20140515
  Serious: Yes (Hospitalization)
  Sender: FDA-Public Use
  Company Number: GB-ROXANE LABORATORIES, INC.-2013-RO-01505RO

PATIENT
  Age: 76 Year
  Sex: Male

DRUGS (1)
  1. DIGOXIN [Suspect]

REACTIONS (4)
  - Toxicity to various agents [Recovered/Resolved]
  - Bradycardia [Unknown]
  - Hyperkalaemia [Unknown]
  - Acidosis [Unknown]
